FAERS Safety Report 7097412-7 (Version None)
Quarter: 2010Q4

REPORT INFORMATION
  Report Type: 
  Country: None (occurrence: None)
  Receive Date: 20101111
  Receipt Date: 20101104
  Transmission Date: 20110411
  Serious: Yes (Other)
  Sender: FDA-Public Use
  Company Number: JP-PFIZER INC-2010140399

PATIENT
  Age: 25 Year
  Sex: Male

DRUGS (7)
  1. METHYLPREDNISOLONE [Suspect]
     Indication: PAIN IN EXTREMITY
     Dosage: LOW TO MODERATE
  2. DICLOFENAC [Concomitant]
     Dosage: 50 MG/DAY
  3. LOXOPROFEN [Concomitant]
     Dosage: 120 MG/DAY
  4. CARBAMAZEPINE [Concomitant]
     Dosage: 200 MG/DAY
  5. ASPIRIN [Concomitant]
     Dosage: 100 MG/DAY
  6. CLOPIDOGREL [Concomitant]
     Dosage: 75 MG/DAY
  7. ALPHA-D-GALACTOSIDASE [Concomitant]

REACTIONS (1)
  - CENTRAL OBESITY [None]
